FAERS Safety Report 20017886 (Version 1)
Quarter: 2021Q4

REPORT INFORMATION
  Report Type: Spontaneous
  Country: KR (occurrence: KR)
  Receive Date: 20211101
  Receipt Date: 20211101
  Transmission Date: 20220303
  Serious: Yes (Death, Hospitalization)
  Sender: FDA-Public Use
  Company Number: KR-AMGEN-KORSL2021166940

PATIENT
  Sex: Male

DRUGS (18)
  1. FILGRASTIM [Suspect]
     Active Substance: FILGRASTIM
     Indication: Product used for unknown indication
     Dosage: UNK
     Route: 065
     Dates: start: 20110818, end: 20110828
  2. FILGRASTIM [Suspect]
     Active Substance: FILGRASTIM
     Dosage: UNK
     Route: 042
     Dates: start: 20110627, end: 20110923
  3. DECITABINE [Suspect]
     Active Substance: DECITABINE
     Indication: Product used for unknown indication
     Dosage: 20 MG/M2
     Route: 042
     Dates: start: 20110531, end: 20110604
  4. DECITABINE [Suspect]
     Active Substance: DECITABINE
     Dosage: 20 MG/M2
     Route: 042
     Dates: start: 20110628, end: 20110702
  5. DECITABINE [Suspect]
     Active Substance: DECITABINE
     Dosage: 20 MG/M2
     Route: 042
     Dates: start: 20110729, end: 20110802
  6. DECITABINE [Suspect]
     Active Substance: DECITABINE
     Dosage: 20 MG/M2
     Route: 042
     Dates: start: 20110826, end: 20110830
  7. ACYCLOVIR [Concomitant]
     Active Substance: ACYCLOVIR
     Indication: Product used for unknown indication
     Dosage: UNK
     Route: 048
     Dates: start: 20110630, end: 20110825
  8. ACYCLOVIR [Concomitant]
     Active Substance: ACYCLOVIR
     Dosage: UNK
     Route: 048
     Dates: start: 20110826, end: 20110923
  9. CEFTAZIDIME [Concomitant]
     Active Substance: CEFTAZIDIME
     Indication: Product used for unknown indication
     Dosage: UNK
     Route: 042
     Dates: start: 20110812, end: 20110824
  10. CHLORPHENIRAMINE MALEATE [Concomitant]
     Active Substance: CHLORPHENIRAMINE MALEATE
     Indication: Product used for unknown indication
     Dosage: UNK
     Route: 042
     Dates: start: 20110626, end: 20110626
  11. CIPROFLOXACIN [Concomitant]
     Active Substance: CIPROFLOXACIN
     Indication: Product used for unknown indication
     Dosage: UNK
     Dates: start: 20110826, end: 20110923
  12. DEXAMETHASONE [Concomitant]
     Active Substance: DEXAMETHASONE
     Indication: Product used for unknown indication
     Dosage: UNK
     Route: 065
     Dates: start: 20110626, end: 20110626
  13. MONTMORILLONITE [Concomitant]
     Active Substance: MONTMORILLONITE
     Indication: Product used for unknown indication
     Dosage: UNK
     Route: 048
     Dates: start: 20110623, end: 20110624
  14. FLUCONAZOLE [Concomitant]
     Active Substance: FLUCONAZOLE
     Indication: Product used for unknown indication
     Dosage: UNK
     Route: 065
     Dates: start: 20110826, end: 20110923
  15. ISEPAMICIN [Concomitant]
     Active Substance: ISEPAMICIN
     Indication: Product used for unknown indication
     Dosage: UNK
     Route: 042
     Dates: start: 20110622, end: 20110629
  16. ITRACONAZOLE [Concomitant]
     Active Substance: ITRACONAZOLE
     Indication: Product used for unknown indication
     Dosage: UNK
     Route: 048
     Dates: start: 20110530, end: 20110617
  17. LENOGRASTIM [Concomitant]
     Active Substance: LENOGRASTIM
     Indication: Product used for unknown indication
     Dosage: UNK
     Route: 058
     Dates: start: 20110623, end: 20110624
  18. MEROPENEM [Concomitant]
     Active Substance: MEROPENEM
     Indication: Product used for unknown indication
     Dosage: UNK
     Route: 042
     Dates: start: 20110911, end: 20110926

REACTIONS (1)
  - Condition aggravated [Fatal]

NARRATIVE: CASE EVENT DATE: 20111003
